FAERS Safety Report 16780365 (Version 1)
Quarter: 2019Q3

REPORT INFORMATION
  Report Type: Spontaneous
  Country: US (occurrence: US)
  Receive Date: 20190717
  Receipt Date: 20190717
  Transmission Date: 20191005
  Serious: Yes (Other)
  Sender: FDA-Public Use
  Company Number: None

PATIENT
  Age: 66 Year
  Sex: Male
  Weight: 85.73 kg

DRUGS (8)
  1. MAGNESIUM OXIDE. [Concomitant]
     Active Substance: MAGNESIUM OXIDE
  2. METOPROLOL TARTRATE. [Concomitant]
     Active Substance: METOPROLOL TARTRATE
  3. FOLIC ACID. [Concomitant]
     Active Substance: FOLIC ACID
  4. MEDROL (PAK) 4 [Concomitant]
  5. LASIX [Concomitant]
     Active Substance: FUROSEMIDE
  6. KRYSTEXXA [Suspect]
     Active Substance: PEGLOTICASE
     Indication: HYPERURICAEMIA
     Dosage: ?          QUANTITY:8 MG/ML - MILLLIGRAMS PER MILLILITRES;OTHER FREQUENCY:EVERY 2 WEEKS;?
     Route: 042
     Dates: start: 20190613
  7. DEPO-MEDROL [Concomitant]
     Active Substance: METHYLPREDNISOLONE ACETATE
  8. ATORVASTATIN [Concomitant]
     Active Substance: ATORVASTATIN

REACTIONS (2)
  - Flushing [None]
  - Pruritus [None]

NARRATIVE: CASE EVENT DATE: 20190711
